FAERS Safety Report 12450252 (Version 1)
Quarter: 2016Q2

REPORT INFORMATION
  Report Type: Report from Study
  Country: CA (occurrence: CA)
  Receive Date: 20160609
  Receipt Date: 20160609
  Transmission Date: 20160815
  Serious: Yes (Other)
  Sender: FDA-Public Use
  Company Number: CA-ROCHE-1649927

PATIENT
  Age: 79 Year
  Sex: Male

DRUGS (14)
  1. ESBRIET [Suspect]
     Active Substance: PIRFENIDONE
     Indication: IDIOPATHIC PULMONARY FIBROSIS
     Route: 048
     Dates: start: 20151016
  2. SENOKOT [Concomitant]
     Active Substance: SENNOSIDES
  3. ESBRIET [Suspect]
     Active Substance: PIRFENIDONE
     Route: 048
     Dates: start: 20151023
  4. ESBRIET [Suspect]
     Active Substance: PIRFENIDONE
     Dosage: 534 MG, 534 MG AND 801 MG, (267 MG 2 TABLETS IN THE MORNING, 267 MG 2 TABLETS AT LUNCH, AND 267 MG 3
     Route: 048
     Dates: start: 20151117
  5. VITAMIN B12 [Concomitant]
     Active Substance: CYANOCOBALAMIN
  6. SPIRIVA [Concomitant]
     Active Substance: TIOTROPIUM BROMIDE MONOHYDRATE
  7. ALEVE [Concomitant]
     Active Substance: NAPROXEN SODIUM
  8. DOCUSATE SODIUM. [Concomitant]
     Active Substance: DOCUSATE SODIUM
  9. SYMBICORT [Concomitant]
     Active Substance: BUDESONIDE\FORMOTEROL FUMARATE DIHYDRATE
  10. ESBRIET [Suspect]
     Active Substance: PIRFENIDONE
     Route: 048
     Dates: start: 20151030
  11. PANTOPRAZOLE [Concomitant]
     Active Substance: PANTOPRAZOLE SODIUM
  12. ROSUVASTATIN. [Concomitant]
     Active Substance: ROSUVASTATIN
  13. ACETYLSALICYLIC ACID (EC) [Concomitant]
  14. PREGABALIN. [Concomitant]
     Active Substance: PREGABALIN

REACTIONS (20)
  - Abdominal pain upper [Not Recovered/Not Resolved]
  - Oxygen supplementation [Not Recovered/Not Resolved]
  - Dizziness [Recovering/Resolving]
  - Dysuria [Not Recovered/Not Resolved]
  - Dry mouth [Not Recovered/Not Resolved]
  - Impaired work ability [Not Recovered/Not Resolved]
  - Dysphagia [Not Recovered/Not Resolved]
  - Pulmonary function test abnormal [Unknown]
  - Hypersomnia [Not Recovered/Not Resolved]
  - Bowel movement irregularity [Unknown]
  - Faeces discoloured [Unknown]
  - Fatigue [Unknown]
  - Dry throat [Not Recovered/Not Resolved]
  - Fatigue [Not Recovered/Not Resolved]
  - Dyspnoea [Not Recovered/Not Resolved]
  - Headache [Not Recovered/Not Resolved]
  - Pharyngeal oedema [Recovering/Resolving]
  - Chest pain [Unknown]
  - Productive cough [Not Recovered/Not Resolved]
  - Decreased activity [Not Recovered/Not Resolved]

NARRATIVE: CASE EVENT DATE: 20151016
